FAERS Safety Report 14476109 (Version 6)
Quarter: 2018Q2

REPORT INFORMATION
  Report Type: Spontaneous
  Country: DK (occurrence: DK)
  Receive Date: 20180201
  Receipt Date: 20180515
  Transmission Date: 20180711
  Serious: Yes (Other)
  Sender: FDA-Public Use
  Company Number: DK-MYLANLABS-2018M1006015

PATIENT
  Age: 55 Year
  Sex: Male

DRUGS (5)
  1. CISPLATIN. [Suspect]
     Active Substance: CISPLATIN
     Indication: NASAL SINUS CANCER
     Dosage: 75 MG/M2 I.V. DAY ONE EVERY THREE WEEKS FOR A TOTAL OF FOUR SERIES
     Route: 042
  2. ETOPOSIDE. [Suspect]
     Active Substance: ETOPOSIDE
     Indication: MIXED ADENONEUROENDOCRINE CARCINOMA
     Dosage: 120 MG/M2, Q3W, DAY ONE TO THREE EVERY THREE WEEKS FOR A TOTAL OF FOUR SERIES
     Route: 042
  3. CISPLATIN. [Suspect]
     Active Substance: CISPLATIN
     Indication: MIXED ADENONEUROENDOCRINE CARCINOMA
     Dosage: 75 MG/M2, 3XW 75 MG/M2 I.V.DAY ONE EVERY THREE WEEKS FOR A TOTAL OF FOUR SERIES
     Route: 042
  4. ETOPOSIDE. [Suspect]
     Active Substance: ETOPOSIDE
     Indication: NASAL SINUS CANCER
     Dosage: DAY ONE TO THREE EVERY THREE WEEKS FOR A TOTAL OF FOUR SERIES
     Route: 042
  5. CISPLATIN. [Suspect]
     Active Substance: CISPLATIN
     Dosage: 75 MG/M2, UNK (DAY ONE)
     Route: 042

REACTIONS (4)
  - Nausea [Unknown]
  - Product use in unapproved indication [Unknown]
  - Neutropenia [Unknown]
  - Headache [Recovering/Resolving]
